FAERS Safety Report 6709771-2 (Version None)
Quarter: 2010Q2

REPORT INFORMATION
  Report Type: 
  Country: None (occurrence: None)
  Receive Date: 20100504
  Receipt Date: 20100423
  Transmission Date: 20101027
  Serious: Yes (Death)
  Sender: FDA-Public Use
  Company Number: US-ROCHE-700486

PATIENT
  Sex: Male

DRUGS (5)
  1. BEVACIZUMAB [Suspect]
     Dosage: UNK
     Route: 065
     Dates: end: 20091230
  2. GDC-0449 [Suspect]
     Dosage: UNK
     Route: 065
     Dates: end: 20091230
  3. IRINOTECAN HYDROCHLORIDE [Suspect]
     Dosage: UNK
     Route: 065
     Dates: end: 20091230
  4. FLUOROURACIL [Suspect]
     Dosage: UNK
     Route: 065
     Dates: end: 20091230
  5. LEUCOVORIN CALCIUM [Suspect]
     Dosage: UNK
     Route: 065
     Dates: end: 20091230

REACTIONS (3)
  - DEATH [None]
  - RENAL FAILURE [None]
  - SEPSIS [None]
